FAERS Safety Report 7170800-6 (Version None)
Quarter: 2010Q4

REPORT INFORMATION
  Report Type: 
  Country: None (occurrence: None)
  Receive Date: 20101214
  Receipt Date: 20101214
  Transmission Date: 20110411
  Serious: Yes (Hospitalization)
  Sender: FDA-Public Use
  Company Number: None

PATIENT
  Age: 68 Year
  Sex: Male
  Weight: 60 kg

DRUGS (2)
  1. MEGESTROL ACETATE [Suspect]
     Indication: DECREASED APPETITE
     Dosage: 800 MG EVERY DAY PO
     Route: 048
     Dates: start: 20100713, end: 20100812
  2. HEPARIN [Suspect]
     Indication: THROMBOSIS PROPHYLAXIS
     Dosage: 5000 UNITS TID SQ
     Route: 058
     Dates: start: 20100821, end: 20100825

REACTIONS (3)
  - PULMONARY EMBOLISM [None]
  - RADIATION OESOPHAGITIS [None]
  - TREATMENT FAILURE [None]
